FAERS Safety Report 8399495-0 (Version None)
Quarter: 2012Q2

REPORT INFORMATION
  Report Type: 
  Country: None (occurrence: None)
  Receive Date: 20120323
  Receipt Date: 20110215
  Transmission Date: 20120825
  Serious: Yes (Hospitalization)
  Sender: FDA-Public Use
  Company Number: 163-21880-11011994

PATIENT
  Age: 62 Year
  Sex: Female

DRUGS (3)
  1. REVLIMID [Suspect]
     Indication: MULTIPLE MYELOMA
     Dosage: 25 MG, DAILY X 21 DAYS, PO, 15 MG, DAILY FOR 21 DAYS, PO,
     Route: 048
     Dates: start: 20110118
  2. REVLIMID [Suspect]
     Indication: MULTIPLE MYELOMA
     Dosage: 25 MG, DAILY X 21 DAYS, PO, 15 MG, DAILY FOR 21 DAYS, PO,
     Route: 048
     Dates: start: 20100630
  3. REVLIMID [Suspect]

REACTIONS (2)
  - SINUSITIS [None]
  - FEBRILE NEUTROPENIA [None]
